FAERS Safety Report 19920992 (Version 1)
Quarter: 2021Q4

REPORT INFORMATION
  Report Type: Spontaneous
  Country: US (occurrence: US)
  Receive Date: 20211005
  Receipt Date: 20211005
  Transmission Date: 20220303
  Serious: No
  Sender: FDA-Public Use
  Company Number: US-ADAMAS PHARMA, LLC-2021ADA01547

PATIENT
  Age: 78 Year
  Sex: Male
  Weight: 102.49 kg

DRUGS (14)
  1. GOCOVRI [Suspect]
     Active Substance: AMANTADINE
     Indication: Dyskinesia
     Dosage: 137 MG, 1X/DAY EVERY NIGHT AT BEDTIME
     Route: 048
     Dates: start: 20210625, end: 20210626
  2. CARBIDOPA\LEVODOPA [Concomitant]
     Active Substance: CARBIDOPA\LEVODOPA
  3. CELECOXIB [Concomitant]
     Active Substance: CELECOXIB
  4. DULOXETINE [Concomitant]
     Active Substance: DULOXETINE
  5. GABAPENTIN [Concomitant]
     Active Substance: GABAPENTIN
     Dosage: UNK
     Dates: end: 2021
  6. GABAPENTIN [Concomitant]
     Active Substance: GABAPENTIN
     Dosage: UNK DECREASED DOSE
     Dates: start: 2021
  7. METAMUCIL [Concomitant]
     Active Substance: PLANTAGO SEED
  8. MIRALAX [Concomitant]
     Active Substance: POLYETHYLENE GLYCOL 3350
  9. PHENYTOIN EXTENDED [Concomitant]
     Dosage: UNK
     Dates: end: 2021
  10. PHENYTOIN EXTENDED [Concomitant]
     Dosage: UNK DECREASED DOSE
     Dates: start: 2021
  11. PRAVASTATIN SODIUM [Concomitant]
     Active Substance: PRAVASTATIN SODIUM
  12. TRAMADOL HYDROCHLORIDE [Concomitant]
     Active Substance: TRAMADOL HYDROCHLORIDE
  13. TRAZODONE [Concomitant]
     Active Substance: TRAZODONE HYDROCHLORIDE
  14. STOOL SOFTENER (DOCUSATE) [Concomitant]
     Active Substance: DOCUSATE

REACTIONS (10)
  - Memory impairment [Recovering/Resolving]
  - Movement disorder [Recovering/Resolving]
  - Tremor [Recovering/Resolving]
  - Coordination abnormal [Recovering/Resolving]
  - Loss of personal independence in daily activities [Unknown]
  - Balance disorder [Unknown]
  - Speech disorder [Recovering/Resolving]
  - Cognitive disorder [Unknown]
  - Fall [Unknown]
  - Dizziness [Unknown]

NARRATIVE: CASE EVENT DATE: 20210601
